FAERS Safety Report 5358262-2 (Version None)
Quarter: 2007Q2

REPORT INFORMATION
  Report Type: 
  Country: None (occurrence: None)
  Receive Date: 20070613
  Receipt Date: 20070613
  Transmission Date: 20071010
  Serious: No
  Sender: FDA-Public Use
  Company Number: None

PATIENT
  Age: 47 Year
  Sex: Male

DRUGS (1)
  1. VANCOMYCIN [Suspect]
     Indication: OSTEOMYELITIS
     Dosage: 1000MG IV Q12
     Route: 042
     Dates: start: 20070531, end: 20070601

REACTIONS (3)
  - CHILLS [None]
  - PRURITUS [None]
  - PYREXIA [None]
